FAERS Safety Report 5842652-5 (Version None)
Quarter: 2008Q3

REPORT INFORMATION
  Report Type: 
  Country: None (occurrence: None)
  Receive Date: 20080808
  Receipt Date: 20080725
  Transmission Date: 20090109
  Serious: Yes (Hospitalization)
  Sender: FDA-Public Use
  Company Number: A-US2007-17075

PATIENT
  Age: 72 Year
  Sex: Female

DRUGS (1)
  1. TRACLEER [Suspect]
     Indication: PULMONARY HYPERTENSION
     Dosage: MG, ORAL
     Route: 048
     Dates: start: 20051011

REACTIONS (9)
  - ATRIAL FIBRILLATION [None]
  - BLOOD BILIRUBIN INCREASED [None]
  - CHEST PAIN [None]
  - DIZZINESS [None]
  - DYSPNOEA [None]
  - HEART RATE IRREGULAR [None]
  - HOT FLUSH [None]
  - LIVER FUNCTION TEST ABNORMAL [None]
  - PNEUMONIA [None]
